FAERS Safety Report 25893239 (Version 1)
Quarter: 2025Q4

REPORT INFORMATION
  Report Type: Spontaneous
  Country: EU (occurrence: EU)
  Receive Date: 20251008
  Receipt Date: 20251008
  Transmission Date: 20260118
  Serious: Yes (Other)
  Sender: AUROBINDO
  Company Number: EU-Orion Corporation ORION PHARMA-OLAA2025-0001

PATIENT
  Age: 36 Year
  Sex: Female

DRUGS (3)
  1. OLANZAPINE [Suspect]
     Active Substance: OLANZAPINE
     Indication: Insomnia
     Dosage: 10 MILLIGRAM, ONCE A DAY (RANGE 5MG-15MG/DAY  )
     Route: 065
     Dates: start: 200709, end: 202502
  2. OLANZAPINE [Suspect]
     Active Substance: OLANZAPINE
     Indication: Anxiety
  3. OLANZAPINE [Suspect]
     Active Substance: OLANZAPINE
     Indication: Delusional disorder, unspecified type

REACTIONS (12)
  - Mental impairment [Recovered/Resolved]
  - Emotional poverty [Recovered/Resolved]
  - Thought blocking [Recovered/Resolved]
  - Weight increased [Recovered/Resolved]
  - Vertigo [Recovered/Resolved]
  - Blood pressure fluctuation [Recovered/Resolved]
  - Disturbance in attention [Recovered/Resolved]
  - Brain fog [Recovered/Resolved]
  - Abulia [Recovered/Resolved]
  - Poor quality sleep [Recovered/Resolved]
  - Product prescribing issue [Unknown]
  - Product use in unapproved indication [Unknown]

NARRATIVE: CASE EVENT DATE: 20070901
